FAERS Safety Report 10421923 (Version 1)
Quarter: 2014Q3

REPORT INFORMATION
  Report Type: Report from Study
  Country: BR (occurrence: BR)
  Receive Date: 20140901
  Receipt Date: 20140901
  Transmission Date: 20150326
  Serious: Yes (Hospitalization, Other)
  Sender: FDA-Public Use
  Company Number: PHHY2014BR106759

PATIENT
  Age: 40 Year
  Sex: Male
  Weight: 60 kg

DRUGS (3)
  1. AMITRIPTYLINE [Concomitant]
     Active Substance: AMITRIPTYLINE
     Indication: DEPRESSION
  2. AMITRIPTYLINE [Concomitant]
     Active Substance: AMITRIPTYLINE
     Indication: MIGRAINE
     Dosage: 2 DF, QHS
     Dates: start: 2011, end: 201404
  3. GILENYA [Suspect]
     Active Substance: FINGOLIMOD HYDROCHLORIDE
     Indication: MULTIPLE SCLEROSIS
     Dosage: 1 DF, QD
     Route: 048
     Dates: start: 20140209

REACTIONS (7)
  - Nuclear magnetic resonance imaging abnormal [Recovering/Resolving]
  - Migraine [Recovering/Resolving]
  - Multiple sclerosis relapse [Recovering/Resolving]
  - Diplopia [Recovering/Resolving]
  - Pain in extremity [Recovering/Resolving]
  - Insomnia [Recovering/Resolving]
  - Formication [Recovering/Resolving]

NARRATIVE: CASE EVENT DATE: 20140818
